FAERS Safety Report 17169542 (Version 2)
Quarter: 2019Q4

REPORT INFORMATION
  Report Type: Spontaneous
  Country: JP (occurrence: JP)
  Receive Date: 20191218
  Receipt Date: 20191227
  Transmission Date: 20200122
  Serious: Yes (Hospitalization, Other)
  Sender: FDA-Public Use
  Company Number: JP-TEVA-2019-JP-1146929

PATIENT
  Age: 8 Decade
  Sex: Female

DRUGS (4)
  1. NEUPRO [Concomitant]
     Active Substance: ROTIGOTINE
     Dates: end: 20191019
  2. L CARTIN [Concomitant]
     Active Substance: LEVOCARNITINE HYDROCHLORIDE
     Dates: end: 20191019
  3. MIRAPEX [Concomitant]
     Active Substance: PRAMIPEXOLE DIHYDROCHLORIDE
  4. AZILECT [Suspect]
     Active Substance: RASAGILINE MESYLATE
     Indication: PARKINSON^S DISEASE
     Dosage: .5 MILLIGRAM DAILY;
     Route: 048
     Dates: end: 20191009

REACTIONS (3)
  - Respiratory disorder [Recovered/Resolved]
  - Condition aggravated [Recovered/Resolved]
  - Hallucination [Recovering/Resolving]

NARRATIVE: CASE EVENT DATE: 2019
